FAERS Safety Report 13424094 (Version 2)
Quarter: 2017Q2

REPORT INFORMATION
  Report Type: Spontaneous
  Country: JP (occurrence: JP)
  Receive Date: 20170410
  Receipt Date: 20170414
  Transmission Date: 20170830
  Serious: Yes (Other)
  Sender: FDA-Public Use
  Company Number: JP-PFIZER INC-2017149781

PATIENT
  Age: 60 Year
  Sex: Female

DRUGS (3)
  1. CAPTOPRIL. [Concomitant]
     Active Substance: CAPTOPRIL
     Indication: HYPERTENSION
     Dosage: 25 MG, DAILY
  2. METHYLPREDNISOLONE. [Suspect]
     Active Substance: METHYLPREDNISOLONE
     Indication: SYSTEMIC SCLERODERMA
     Dosage: 500 MG/DAY FOR 3 SUCCESSIVE DAYS
  3. METHYLPREDNISOLONE. [Suspect]
     Active Substance: METHYLPREDNISOLONE
     Dosage: UNK (ONE WEEK LATER, A 2ND COURSE OF STEROID PULSE THERAPY WAS ADMINISTERED)

REACTIONS (3)
  - Scleroderma renal crisis [Unknown]
  - Colitis ischaemic [Unknown]
  - Systemic scleroderma [Unknown]
